FAERS Safety Report 22073776 (Version 1)
Quarter: 2023Q1

REPORT INFORMATION
  Report Type: Spontaneous
  Country: DE (occurrence: DE)
  Receive Date: 20230308
  Receipt Date: 20230308
  Transmission Date: 20230418
  Serious: Yes (Death, Hospitalization, Other)
  Sender: FDA-Public Use
  Company Number: DE-BAYER-201035862GPV

PATIENT
  Age: 31 Year
  Sex: Male
  Weight: 125 kg

DRUGS (5)
  1. GADOBUTROL [Suspect]
     Active Substance: GADOBUTROL
     Indication: Magnetic resonance imaging
     Dosage: 10 ML (DAILY DOSE), ONCE, INTRAVENOUS
     Route: 042
     Dates: start: 20100811, end: 20100811
  2. ENALAPRIL [Concomitant]
     Active Substance: ENALAPRIL
  3. BISOPROLOL [Concomitant]
     Active Substance: BISOPROLOL
     Dosage: 2.5 MG
  4. DIABESIN [Concomitant]
     Dosage: 2 X 1/2
  5. ALLOPURINOL [Concomitant]
     Active Substance: ALLOPURINOL
     Dosage: 300 MG

REACTIONS (9)
  - Pulseless electrical activity [Fatal]
  - Cyanosis [Fatal]
  - Seizure [Unknown]
  - Foaming at mouth [Fatal]
  - Pulmonary oedema [Fatal]
  - Shock [Fatal]
  - Pyrexia [Fatal]
  - Pulmonary embolism [Fatal]
  - Blood catecholamines decreased [Fatal]

NARRATIVE: CASE EVENT DATE: 20100811
